FAERS Safety Report 21574866 (Version 1)
Quarter: 2022Q4

REPORT INFORMATION
  Report Type: Spontaneous
  Country: IN (occurrence: IN)
  Receive Date: 20221110
  Receipt Date: 20221110
  Transmission Date: 20230113
  Serious: Yes (Other)
  Sender: FDA-Public Use
  Company Number: IN-SUN PHARMACEUTICAL INDUSTRIES LTD-2022R1-362508

PATIENT
  Age: 65 Year
  Sex: Male

DRUGS (1)
  1. ASPIRIN\CLOPIDOGREL BISULFATE [Suspect]
     Active Substance: ASPIRIN\CLOPIDOGREL BISULFATE
     Indication: Cardiovascular disorder
     Dosage: UNK (150 MG)
     Route: 065

REACTIONS (2)
  - Bicytopenia [Recovering/Resolving]
  - Gingival recession [Recovering/Resolving]
